FAERS Safety Report 6836519-3 (Version None)
Quarter: 2010Q3

REPORT INFORMATION
  Report Type: 
  Country: None (occurrence: None)
  Receive Date: 20100713
  Receipt Date: 20100706
  Transmission Date: 20110219
  Serious: Yes (Hospitalization)
  Sender: FDA-Public Use
  Company Number: US-MYLANLABS-2010S1010606

PATIENT
  Age: 73 Year
  Sex: Female

DRUGS (5)
  1. TERAZOSIN HYDROCHLORIDE [Suspect]
     Indication: URINARY RETENTION
     Route: 048
     Dates: start: 20100611, end: 20100611
  2. IMIPRAMINE [Concomitant]
  3. TRIAMTERENE AND HYDROCHLOROTHIAZIDE [Concomitant]
     Dosage: 75-50 (NO UNITS PROVIDED)
  4. LIPITOR [Concomitant]
  5. DILTIAZEM [Concomitant]

REACTIONS (8)
  - CONTUSION [None]
  - DRUG DISPENSING ERROR [None]
  - FALL [None]
  - HEADACHE [None]
  - HYPOTENSION [None]
  - INCORRECT DOSE ADMINISTERED [None]
  - LOSS OF CONSCIOUSNESS [None]
  - SYNCOPE [None]
